FAERS Safety Report 9142704 (Version 1)
Quarter: 2013Q1

REPORT INFORMATION
  Report Type: Spontaneous
  Country: US (occurrence: US)
  Receive Date: 20130306
  Receipt Date: 20130306
  Transmission Date: 20140127
  Serious: No
  Sender: FDA-Public Use
  Company Number: US-ENDO PHARMACEUTICALS INC.-OPER20110082

PATIENT
  Age: 58 Year
  Sex: Female

DRUGS (16)
  1. OPANA ER [Suspect]
     Indication: PRODUCT USED FOR UNKNOWN INDICATION
     Route: 048
  2. OPANA [Suspect]
     Indication: PRODUCT USED FOR UNKNOWN INDICATION
     Route: 048
  3. BACLOFEN [Concomitant]
     Route: 048
  4. CARISOPRODOL [Concomitant]
     Route: 048
  5. VERAPAMIL [Concomitant]
  6. BUSPAR [Concomitant]
  7. CELEXA [Concomitant]
  8. LIPITOR [Concomitant]
  9. LISINOPRIL [Concomitant]
  10. REGLAN [Concomitant]
  11. KAPIDEX [Concomitant]
  12. NOVOLOG [Concomitant]
  13. QUININE SULFATE [Concomitant]
  14. REQUIP [Concomitant]
  15. ZETIA [Concomitant]
  16. LANTUS [Concomitant]

REACTIONS (2)
  - Parosmia [Not Recovered/Not Resolved]
  - Nausea [Not Recovered/Not Resolved]
